FAERS Safety Report 8581875-1 (Version None)
Quarter: 2012Q3

REPORT INFORMATION
  Report Type: 
  Country: None (occurrence: None)
  Receive Date: 20120809
  Receipt Date: 20120801
  Transmission Date: 20120928
  Serious: Yes (Hospitalization, Other)
  Sender: FDA-Public Use
  Company Number: US-JNJFOC-20120802860

PATIENT
  Sex: Female
  Weight: 81.65 kg

DRUGS (4)
  1. HALOPERIDOL [Suspect]
     Indication: BIPOLAR DISORDER
     Dosage: AS NEEDED
     Route: 048
     Dates: end: 20120701
  2. SAPHRIS [Suspect]
     Indication: PRODUCT USED FOR UNKNOWN INDICATION
     Route: 065
     Dates: end: 20120701
  3. BENZTROPINE MESYLATE [Concomitant]
     Indication: PRODUCT USED FOR UNKNOWN INDICATION
     Route: 065
     Dates: start: 20080101, end: 20120701
  4. HALOPERIDOL [Suspect]
     Route: 048
     Dates: start: 20080101

REACTIONS (8)
  - DISTURBANCE IN SOCIAL BEHAVIOUR [None]
  - MANIA [None]
  - PHYSICAL ASSAULT [None]
  - IMPAIRED SELF-CARE [None]
  - TARDIVE DYSKINESIA [None]
  - MENTAL IMPAIRMENT [None]
  - AGGRESSION [None]
  - PSYCHOTIC DISORDER [None]
